FAERS Safety Report 6318158-6 (Version None)
Quarter: 2009Q3

REPORT INFORMATION
  Report Type: 
  Country: None (occurrence: None)
  Receive Date: 20090821
  Receipt Date: 20090814
  Transmission Date: 20100115
  Serious: Yes (Other)
  Sender: FDA-Public Use
  Company Number: A0802298A

PATIENT
  Sex: Female

DRUGS (2)
  1. WELLBUTRIN [Suspect]
     Indication: DRUG USE FOR UNKNOWN INDICATION
     Route: 065
  2. GENERAL ANESTHESIA [Concomitant]

REACTIONS (3)
  - CONVULSION [None]
  - POST PROCEDURAL COMPLICATION [None]
  - SURGERY [None]
